FAERS Safety Report 5250694-6 (Version None)
Quarter: 2007Q1

REPORT INFORMATION
  Report Type: 
  Country: None (occurrence: None)
  Receive Date: 20070228
  Receipt Date: 20060620
  Transmission Date: 20070707
  Serious: No
  Sender: FDA-Public Use
  Company Number: US-GLAXOSMITHKLINE-A0609627A

PATIENT
  Sex: Female

DRUGS (3)
  1. LAMICTAL [Suspect]
     Indication: DRUG USE FOR UNKNOWN INDICATION
     Dates: start: 20040601, end: 20050101
  2. MULTI-VITAMIN [Concomitant]
  3. UNKNOWN MEDICATION [Concomitant]

REACTIONS (2)
  - HYPOTRICHOSIS [None]
  - RASH [None]
